FAERS Safety Report 5731832-5 (Version None)
Quarter: 2008Q2

REPORT INFORMATION
  Report Type: 
  Country: None (occurrence: None)
  Receive Date: 20080508
  Receipt Date: 20080506
  Transmission Date: 20081010
  Serious: Yes (Hospitalization)
  Sender: FDA-Public Use
  Company Number: A0727041A

PATIENT
  Age: 59 Year
  Sex: Male

DRUGS (10)
  1. COREG [Suspect]
     Indication: DRUG USE FOR UNKNOWN INDICATION
  2. LOPRESSOR [Suspect]
     Indication: DRUG USE FOR UNKNOWN INDICATION
  3. BLINDED TRIAL MEDICATION [Concomitant]
     Indication: DRUG USE FOR UNKNOWN INDICATION
     Dates: start: 20070504
  4. MIRAPEX [Concomitant]
  5. ZETIA [Concomitant]
  6. ZANTAC [Concomitant]
  7. NEXIUM [Concomitant]
  8. NORVASC [Concomitant]
  9. ASPIRIN [Concomitant]
  10. AMBIEN [Concomitant]

REACTIONS (9)
  - CHEST PAIN [None]
  - COUGH [None]
  - DYSPNOEA [None]
  - HEADACHE [None]
  - HYPERHIDROSIS [None]
  - HYPOAESTHESIA [None]
  - PARAESTHESIA [None]
  - PRODUCTIVE COUGH [None]
  - SYNCOPE [None]
